FAERS Safety Report 6223159-2 (Version None)
Quarter: 2009Q2

REPORT INFORMATION
  Report Type: 
  Country: None (occurrence: None)
  Receive Date: 20090611
  Receipt Date: 20090602
  Transmission Date: 20091009
  Serious: Yes (Other)
  Sender: FDA-Public Use
  Company Number: PHHY2008DE27227

PATIENT
  Sex: Male

DRUGS (2)
  1. IMMUNOSPORIN [Suspect]
     Dosage: 200 MG, BID
     Route: 048
     Dates: start: 20080101
  2. IMMUNOSPORIN [Suspect]
     Dosage: 100 MG, BID
     Route: 048
     Dates: end: 20080901

REACTIONS (5)
  - DIZZINESS [None]
  - GINGIVAL HYPERPLASIA [None]
  - HYPERTRICHOSIS [None]
  - PARAESTHESIA [None]
  - TOOTH LOSS [None]
